FAERS Safety Report 14037482 (Version 6)
Quarter: 2018Q1

REPORT INFORMATION
  Report Type: Spontaneous
  Country: US (occurrence: US)
  Receive Date: 20171004
  Receipt Date: 20180212
  Transmission Date: 20180508
  Serious: No
  Sender: FDA-Public Use
  Company Number: PHEH2017US031866

PATIENT
  Sex: Female

DRUGS (1)
  1. ZOFRAN [Suspect]
     Active Substance: ONDANSETRON HYDROCHLORIDE
     Indication: VOMITING IN PREGNANCY
     Dosage: 4 MG, PRN
     Route: 048
     Dates: start: 20050127, end: 20050829

REACTIONS (6)
  - Cystitis interstitial [Unknown]
  - Product use in unapproved indication [Unknown]
  - Arthralgia [Unknown]
  - Injury [Unknown]
  - Emotional distress [Unknown]
  - Maternal exposure during pregnancy [Unknown]
